FAERS Safety Report 5329976-5 (Version None)
Quarter: 2007Q2

REPORT INFORMATION
  Report Type: 
  Country: None (occurrence: None)
  Receive Date: 20070521
  Receipt Date: 20070517
  Transmission Date: 20071010
  Serious: Yes (Death, Hospitalization)
  Sender: FDA-Public Use
  Company Number: A0649762A

PATIENT
  Age: 55 Year
  Sex: Female
  Weight: 77.5 kg

DRUGS (2)
  1. LAPATINIB [Suspect]
     Dosage: 1250MG PER DAY
     Route: 048
     Dates: start: 20070306
  2. CAPECITABINE [Suspect]
     Dosage: 1800MG TWICE PER DAY
     Route: 048
     Dates: start: 20070305

REACTIONS (7)
  - ASTHENIA [None]
  - COGNITIVE DISORDER [None]
  - ENCEPHALOPATHY [None]
  - HYPOKALAEMIA [None]
  - MENTAL IMPAIRMENT [None]
  - NEUTROPENIA [None]
  - SEPSIS [None]
